FAERS Safety Report 10027749 (Version 1)
Quarter: 2014Q1

REPORT INFORMATION
  Report Type: Spontaneous
  Country: JP (occurrence: JP)
  Receive Date: 20140321
  Receipt Date: 20140321
  Transmission Date: 20141002
  Serious: Yes (Hospitalization)
  Sender: FDA-Public Use
  Company Number: JP-EISAI INC-E3810-06954-SPO-JP

PATIENT
  Age: 70 Year
  Sex: Female

DRUGS (7)
  1. RABEFINE [Suspect]
     Indication: HELICOBACTER INFECTION
     Dosage: UNKNOWN
     Route: 048
     Dates: start: 20140227, end: 20140302
  2. AMOXICILLIN [Suspect]
     Indication: HELICOBACTER INFECTION
     Dosage: UNKNOWN
     Route: 048
     Dates: start: 20140227, end: 20140302
  3. METRONIDAZOLE [Suspect]
     Indication: HELICOBACTER INFECTION
     Dosage: UNKNOWN
     Route: 048
     Dates: start: 20140227, end: 20140302
  4. NORVASC [Concomitant]
     Indication: HYPERTENSION
     Route: 048
  5. ALFAROL [Concomitant]
     Indication: OSTEOPOROSIS
     Dosage: UNKNOWN
     Route: 048
  6. FOSAMAC [Concomitant]
     Indication: OSTEOPOROSIS
     Dosage: UNKNOWN
     Route: 048
  7. KAMAG G [Concomitant]
     Indication: CONSTIPATION
     Dosage: UNKNOWN
     Route: 048

REACTIONS (3)
  - Enterocolitis [Recovered/Resolved]
  - Haematochezia [Recovered/Resolved]
  - Abdominal pain [Recovered/Resolved]
